FAERS Safety Report 21031562 (Version 1)
Quarter: 2022Q3

REPORT INFORMATION
  Report Type: Report from Study
  Country: KR (occurrence: KR)
  Receive Date: 20220701
  Receipt Date: 20220701
  Transmission Date: 20221026
  Serious: Yes (Death, Hospitalization, Other)
  Sender: FDA-Public Use
  Company Number: KR-BRISTOL-MYERS SQUIBB COMPANY-2022-063304

PATIENT
  Age: 76 Year
  Sex: Female
  Weight: 38 kg

DRUGS (13)
  1. NIVOLUMAB [Suspect]
     Active Substance: NIVOLUMAB
     Indication: Gastrooesophageal cancer
     Route: 042
     Dates: start: 20220517, end: 20220614
  2. REGORAFENIB [Suspect]
     Active Substance: REGORAFENIB
     Indication: Gastrooesophageal cancer
     Route: 048
     Dates: start: 20220517, end: 20220619
  3. NALOXONE HYDROCHLORIDE\OXYCODONE HYDROCHLORIDE [Concomitant]
     Active Substance: NALOXONE HYDROCHLORIDE\OXYCODONE HYDROCHLORIDE
     Indication: Gastrooesophageal cancer
     Route: 048
     Dates: start: 20220517, end: 20220619
  4. ESOMEZOLE [Concomitant]
     Indication: Prophylaxis
     Route: 048
     Dates: start: 20220517, end: 20220619
  5. HYDROCORTISONE SODIUM SUCCINATE [Concomitant]
     Active Substance: HYDROCORTISONE SODIUM SUCCINATE
     Indication: Prophylaxis
     Route: 042
     Dates: start: 20220531, end: 20220531
  6. HYDROCORTISONE SODIUM SUCCINATE [Concomitant]
     Active Substance: HYDROCORTISONE SODIUM SUCCINATE
     Route: 042
     Dates: start: 20220614, end: 20220614
  7. GASTER [CROMOGLICATE SODIUM] [Concomitant]
     Indication: Prophylaxis
     Route: 042
     Dates: start: 20220531, end: 20220531
  8. GASTER [CROMOGLICATE SODIUM] [Concomitant]
     Route: 042
     Dates: start: 20220614, end: 20220614
  9. CHLORPHENIRAMINE [Concomitant]
     Active Substance: CHLORPHENIRAMINE
     Indication: Prophylaxis
     Route: 042
     Dates: start: 20220531, end: 20220531
  10. CHLORPHENIRAMINE [Concomitant]
     Active Substance: CHLORPHENIRAMINE
     Route: 042
     Dates: start: 20220614, end: 20220614
  11. NAXEN-F [Concomitant]
     Indication: Prophylaxis
     Route: 048
     Dates: start: 20220531, end: 20220602
  12. UREA [Concomitant]
     Active Substance: UREA
     Indication: Product used for unknown indication
     Route: 062
     Dates: start: 20220607, end: 20220619
  13. TAMIPOOL [VITAMINS NOS] [Concomitant]
     Indication: Prophylaxis
     Dosage: 1 VIAL, QD
     Route: 042
     Dates: start: 20220614, end: 20220614

REACTIONS (1)
  - Lower gastrointestinal haemorrhage [Fatal]

NARRATIVE: CASE EVENT DATE: 20220620
